FAERS Safety Report 16067489 (Version 2)
Quarter: 2019Q2

REPORT INFORMATION
  Report Type: Report from Study
  Country: JP (occurrence: JP)
  Receive Date: 20190313
  Receipt Date: 20190621
  Transmission Date: 20190711
  Serious: Yes (Life-Threatening, Hospitalization)
  Sender: FDA-Public Use
  Company Number: JP-TAKEDA-2019TUS013658

PATIENT
  Age: 77 Year
  Sex: Female
  Weight: 53.5 kg

DRUGS (6)
  1. ACLARUBICIN HYDROCHLORIDE [Suspect]
     Active Substance: ACLARUBICIN HYDROCHLORIDE
     Indication: ACUTE MYELOID LEUKAEMIA
     Dosage: 20 MILLIGRAM, QD
     Route: 065
     Dates: start: 20181003, end: 20181006
  2. FEBUXOSTAT. [Suspect]
     Active Substance: FEBUXOSTAT
     Indication: TUMOUR LYSIS SYNDROME
     Dosage: 40 MILLIGRAM, QD
     Route: 048
     Dates: start: 20181002, end: 20181025
  3. TAKECAB [Concomitant]
     Active Substance: VONOPRAZAN FUMURATE
     Indication: PROPHYLAXIS
     Dosage: 20 MILLIGRAM, QD
     Route: 048
     Dates: start: 20181002, end: 20181025
  4. CYTARABINE. [Suspect]
     Active Substance: CYTARABINE
     Indication: ACUTE MYELOID LEUKAEMIA
     Dosage: 29.8 MILLIGRAM, QD
     Route: 065
     Dates: start: 20181003, end: 20181016
  5. GRANISETRON [Concomitant]
     Active Substance: GRANISETRON
     Indication: PROPHYLAXIS
     Dosage: 1 MILLIGRAM, QD
     Route: 065
     Dates: start: 20181003, end: 20181006
  6. VANCOMYCIN                         /00314402/ [Suspect]
     Active Substance: VANCOMYCIN
     Indication: FEBRILE NEUTROPENIA
     Dosage: 1 GRAM, BID
     Route: 065
     Dates: start: 20181018, end: 20181024

REACTIONS (6)
  - Anaemia [Not Recovered/Not Resolved]
  - Febrile neutropenia [Recovering/Resolving]
  - Nephropathy toxic [Not Recovered/Not Resolved]
  - Platelet count decreased [Recovering/Resolving]
  - Oral herpes [Recovering/Resolving]
  - Atrial fibrillation [Not Recovered/Not Resolved]

NARRATIVE: CASE EVENT DATE: 20181002
